FAERS Safety Report 23576382 (Version 1)
Quarter: 2024Q1

REPORT INFORMATION
  Report Type: Report from Study
  Country: CA (occurrence: CA)
  Receive Date: 20240228
  Receipt Date: 20240228
  Transmission Date: 20240409
  Serious: Yes (Death, Other)
  Sender: FDA-Public Use
  Company Number: CA-002147023-NVSC2022CA151007

PATIENT
  Sex: Male
  Weight: 56 kg

DRUGS (2)
  1. PIRFENIDONE [Suspect]
     Active Substance: PIRFENIDONE
     Dosage: 801 MG
     Route: 065
  2. PIRFENIDONE [Suspect]
     Active Substance: PIRFENIDONE
     Indication: Pulmonary fibrosis
     Dosage: UNK
     Route: 048

REACTIONS (2)
  - Death [Fatal]
  - Lung diffusion test decreased [Unknown]
